FAERS Safety Report 21484847 (Version 1)
Quarter: 2022Q4

REPORT INFORMATION
  Report Type: Report from Study
  Country: US (occurrence: US)
  Receive Date: 20221020
  Receipt Date: 20221020
  Transmission Date: 20230113
  Serious: Yes (Hospitalization, Other)
  Sender: FDA-Public Use
  Company Number: US-ABBVIE-4167713

PATIENT
  Age: 79 Year
  Sex: Male

DRUGS (1)
  1. VENCLEXTA [Suspect]
     Active Substance: VENETOCLAX
     Indication: Myelodysplastic syndrome
     Route: 048
     Dates: start: 20221011

REACTIONS (8)
  - Central venous catheterisation [Unknown]
  - White blood cell count abnormal [Unknown]
  - Off label use [Unknown]
  - Neck pain [Unknown]
  - Joint range of motion decreased [Unknown]
  - Insomnia [Unknown]
  - Feeling abnormal [Unknown]
  - Headache [Unknown]

NARRATIVE: CASE EVENT DATE: 20221001
